FAERS Safety Report 5202228-X (Version None)
Quarter: 2006Q4

REPORT INFORMATION
  Report Type: 
  Country: None (occurrence: None)
  Receive Date: 20061011
  Receipt Date: 20060727
  Transmission Date: 20070319
  Serious: Yes (Hospitalization)
  Sender: FDA-Public Use
  Company Number: US-JNJFOC-20060505676

PATIENT
  Age: 64 Year
  Sex: Male
  Weight: 83.9154 kg

DRUGS (12)
  1. TYLENOL W/ CODEINE [Suspect]
     Indication: PAIN
  2. ACTIQ [Suspect]
     Indication: PAIN
     Dosage: 400 UG, 1 IN 1 AS NECESSARY
     Dates: start: 20040101
  3. PERCOCET [Suspect]
     Indication: PAIN
  4. ENDOCET (OXYCOCET) [Suspect]
     Indication: PAIN
  5. NEURONTIN [Suspect]
     Indication: PAIN
     Dosage: 300 MG
  6. FENTANYL [Suspect]
     Indication: PAIN
     Dosage: 50 UG, 1 IN 72 HOUR
  7. GLIPIZIDE [Concomitant]
  8. AMBIEN [Concomitant]
  9. NEXIUM [Concomitant]
  10. LIPITOR [Concomitant]
  11. EFFEXOR [Concomitant]
  12. METOPROLOL TARTRATE [Concomitant]

REACTIONS (1)
  - CONSTIPATION [None]
